FAERS Safety Report 5704810-X (Version None)
Quarter: 2008Q2

REPORT INFORMATION
  Report Type: 
  Country: None (occurrence: None)
  Receive Date: 20080414
  Receipt Date: 20080402
  Transmission Date: 20081010
  Serious: Yes (Life-Threatening, Hospitalization)
  Sender: FDA-Public Use
  Company Number: JP-PFIZER INC-2008024571

PATIENT
  Sex: Male

DRUGS (9)
  1. IRINOTECAN HCL [Suspect]
     Indication: COLON CANCER
     Dosage: DAILY DOSE:200MG
     Dates: start: 20071123, end: 20071207
  2. IRINOTECAN HCL [Suspect]
     Dosage: DAILY DOSE:160MG
     Dates: start: 20071222, end: 20080130
  3. IRINOTECAN HCL [Suspect]
     Dosage: DAILY DOSE:120MG
     Dates: start: 20080228, end: 20080228
  4. FLUOROURACIL [Suspect]
     Indication: COLON CANCER
     Dosage: DAILY DOSE:1680MG
     Route: 042
     Dates: start: 20071123, end: 20071208
  5. FLUOROURACIL [Suspect]
     Dosage: DAILY DOSE:1300MG
     Route: 042
     Dates: start: 20071222, end: 20080131
  6. FLUOROURACIL [Suspect]
     Dosage: DAILY DOSE:1000MG
     Route: 042
     Dates: start: 20080228, end: 20080229
  7. LEUCOVORIN CALCIUM [Suspect]
     Indication: COLON CANCER
  8. LACTOBACILLUS BIFIDUS, LYOPHILIZED [Concomitant]
     Indication: DIARRHOEA
     Route: 048
  9. ALLOID [Concomitant]
     Indication: PHARYNGOLARYNGEAL PAIN
     Route: 048
     Dates: start: 20071211

REACTIONS (4)
  - DUODENAL ULCER [None]
  - JEJUNAL ULCER [None]
  - MELAENA [None]
  - SHOCK HAEMORRHAGIC [None]
